FAERS Safety Report 7471653-9 (Version None)
Quarter: 2011Q2

REPORT INFORMATION
  Report Type: 
  Country: None (occurrence: None)
  Receive Date: 20110511
  Receipt Date: 20110427
  Transmission Date: 20111010
  Serious: Yes (Other)
  Sender: FDA-Public Use
  Company Number: GB-RANBAXY-2011RR-44160

PATIENT
  Age: 53 Year
  Sex: Female

DRUGS (2)
  1. AMOXICILLIN AND CLAVULANATE POTASSIUM [Suspect]
     Indication: PELVIC INFECTION
  2. METRONIDAZOLE [Suspect]
     Indication: PELVIC INFECTION
     Dosage: UNK

REACTIONS (2)
  - TONGUE DISORDER [None]
  - ORAL CANDIDIASIS [None]
